FAERS Safety Report 6417750-8 (Version None)
Quarter: 2009Q4

REPORT INFORMATION
  Report Type: 
  Country: None (occurrence: None)
  Receive Date: 20091028
  Receipt Date: 20090930
  Transmission Date: 20100525
  Serious: No
  Sender: FDA-Public Use
  Company Number: US-BAYER-200915074BCC

PATIENT
  Age: 29 Year
  Sex: Female
  Weight: 59 kg

DRUGS (5)
  1. ALEVE [Suspect]
     Indication: DYSMENORRHOEA
     Dosage: TOTAL DAILY DOSE: 880 MG  UNIT DOSE: 220 MG
     Route: 048
  2. ALEVE [Suspect]
     Dosage: TOTAL DAILY DOSE: 660 MG  UNIT DOSE: 220 MG
     Route: 048
     Dates: start: 20090928
  3. WALGREENS MULTI-SYMPTOM COLD DAYTIME [Suspect]
     Indication: NASOPHARYNGITIS
     Dosage: TOTAL DAILY DOSE: 2 DF
     Route: 048
     Dates: start: 20090928
  4. WALGREENS MULTI-SYMPTOM COLD NIGHTTIME [Concomitant]
     Indication: NASOPHARYNGITIS
     Route: 065
  5. ASCORBIC ACID [Concomitant]
     Route: 065

REACTIONS (2)
  - ABDOMINAL PAIN [None]
  - NO ADVERSE EVENT [None]
